FAERS Safety Report 10075842 (Version 1)
Quarter: 2014Q2

REPORT INFORMATION
  Report Type: Spontaneous
  Country: US (occurrence: US)
  Receive Date: 20140414
  Receipt Date: 20140414
  Transmission Date: 20141212
  Serious: Yes (Other)
  Sender: FDA-Public Use
  Company Number: US-TEVA-474857USA

PATIENT
  Sex: Female

DRUGS (3)
  1. GEMFIBROZIL [Suspect]
     Indication: BLOOD CHOLESTEROL INCREASED
  2. HIGH BLOOD PRESSURE MEDICATION [Concomitant]
     Indication: HYPERTENSION
  3. LINUM USITATISSIMUM SEED OIL [Concomitant]

REACTIONS (6)
  - Pharyngeal oedema [Recovering/Resolving]
  - Swollen tongue [Recovering/Resolving]
  - Swelling face [Recovering/Resolving]
  - Local swelling [Recovering/Resolving]
  - Pruritus [Recovering/Resolving]
  - Confusional state [Recovering/Resolving]
